FAERS Safety Report 5265315-6 (Version None)
Quarter: 2007Q1

REPORT INFORMATION
  Report Type: 
  Country: None (occurrence: None)
  Receive Date: 20070314
  Receipt Date: 20070301
  Transmission Date: 20070707
  Serious: Yes (Hospitalization)
  Sender: FDA-Public Use
  Company Number: CH-SHR-CH-2007-007810

PATIENT
  Age: 81 Year
  Sex: Male

DRUGS (6)
  1. SOTALOL HYDROCHLORIDE [Suspect]
     Route: 048
  2. CIBADREX ^CIBA-GEIGY^ [Suspect]
     Indication: DIURETIC THERAPY
     Route: 048
     Dates: end: 20060827
  3. DANCOR [Suspect]
     Dosage: 10 MG, 2X/DAY
     Route: 048
  4. NITRODERM [Suspect]
     Dosage: 25 MG, UNK
     Route: 062
  5. ASPERGIC [Concomitant]
     Dosage: UNK, 1X/DAY
     Route: 048
  6. PLAVIX [Concomitant]
     Dosage: 75 MG, 1X/DAY
     Route: 048

REACTIONS (5)
  - BLOOD PRESSURE SYSTOLIC INCREASED [None]
  - DEHYDRATION [None]
  - HYPONATRAEMIA [None]
  - HYPOTENSION [None]
  - PRESYNCOPE [None]
